FAERS Safety Report 10606510 (Version 1)
Quarter: 2014Q4

REPORT INFORMATION
  Report Type: Spontaneous
  Country: FR (occurrence: FR)
  Receive Date: 20141125
  Receipt Date: 20141125
  Transmission Date: 20150529
  Serious: Yes (Death)
  Sender: FDA-Public Use
  Company Number: FR-009507513-1411FRA009180

PATIENT
  Age: 70 Year
  Sex: Male

DRUGS (10)
  1. INVANZ [Suspect]
     Active Substance: ERTAPENEM SODIUM
     Dosage: UNK
     Route: 042
     Dates: start: 20140929, end: 20141012
  2. KEPPRA [Concomitant]
     Active Substance: LEVETIRACETAM
     Dosage: 1 DF,
     Route: 048
     Dates: start: 201405, end: 20141014
  3. METFORMIN [Concomitant]
     Active Substance: METFORMIN HYDROCHLORIDE
     Dosage: 1 DF, BID
     Route: 048
     Dates: end: 20141012
  4. FAZOL (ISOCONAZOLE NITRATE) [Concomitant]
     Dosage: 1 DF, BID
     Route: 003
  5. STILNOX [Concomitant]
     Active Substance: ZOLPIDEM TARTRATE
     Dosage: UNK
  6. AZOPT [Concomitant]
     Active Substance: BRINZOLAMIDE
     Dosage: 1 DF, BID
     Route: 048
  7. BIMATOPROST. [Concomitant]
     Active Substance: BIMATOPROST
     Dosage: 1 DF, QD
     Route: 048
  8. DOLIPRANE [Concomitant]
     Active Substance: ACETAMINOPHEN
     Dosage: UNK
  9. FORLAX [Concomitant]
     Active Substance: POLYETHYLENE GLYCOL 4000
     Dosage: UNK
  10. DIFFU-K [Concomitant]
     Active Substance: POTASSIUM CHLORIDE
     Dosage: UNK

REACTIONS (2)
  - Epilepsy [Fatal]
  - Petit mal epilepsy [Fatal]

NARRATIVE: CASE EVENT DATE: 201410
